FAERS Safety Report 12335572 (Version 1)
Quarter: 2016Q2

REPORT INFORMATION
  Report Type: Spontaneous
  Country: DE (occurrence: DE)
  Receive Date: 20160505
  Receipt Date: 20160505
  Transmission Date: 20160815
  Serious: Yes (Other)
  Sender: FDA-Public Use
  Company Number: DE-AMGEN-DEUSP2016055333

PATIENT
  Sex: Female

DRUGS (1)
  1. REPATHA [Suspect]
     Active Substance: EVOLOCUMAB
     Indication: PRODUCT USED FOR UNKNOWN INDICATION
     Dosage: 140 MG, UNK
     Route: 065
     Dates: start: 20160219

REACTIONS (7)
  - Pruritus [Unknown]
  - Hot flush [Unknown]
  - Feeling of body temperature change [Unknown]
  - Paraesthesia [Unknown]
  - Dysphagia [Unknown]
  - Nasopharyngitis [Unknown]
  - Oropharyngeal pain [Unknown]
